FAERS Safety Report 5598159-6 (Version None)
Quarter: 2008Q1

REPORT INFORMATION
  Report Type: 
  Country: None (occurrence: None)
  Receive Date: 20080117
  Receipt Date: 20080117
  Transmission Date: 20080703
  Serious: Yes (Hospitalization)
  Sender: FDA-Public Use
  Company Number: None

PATIENT
  Age: 53 Year
  Sex: Male

DRUGS (1)
  1. ASPIRIN [Suspect]
     Dates: start: 20071209

REACTIONS (6)
  - ALCOHOL USE [None]
  - ANOREXIA [None]
  - GASTRIC HAEMORRHAGE [None]
  - GASTRITIS [None]
  - HYPOTENSION [None]
  - OVERDOSE [None]
